FAERS Safety Report 7234727-3 (Version None)
Quarter: 2011Q1

REPORT INFORMATION
  Report Type: 
  Country: None (occurrence: None)
  Receive Date: 20110120
  Receipt Date: 20110113
  Transmission Date: 20110831
  Serious: No
  Sender: FDA-Public Use
  Company Number: US-BIOGENIDEC-2011BI001766

PATIENT
  Age: 59 Year
  Sex: Female

DRUGS (2)
  1. PRAVASTATIN [Concomitant]
     Indication: BLOOD CHOLESTEROL INCREASED
     Dates: start: 20101201, end: 20110101
  2. AVONEX [Suspect]
     Indication: MULTIPLE SCLEROSIS
     Route: 030
     Dates: start: 20090401

REACTIONS (7)
  - FEELING JITTERY [None]
  - GAIT DISTURBANCE [None]
  - MYALGIA [None]
  - FATIGUE [None]
  - BLOOD POTASSIUM DECREASED [None]
  - SPEECH DISORDER [None]
  - MUSCULAR WEAKNESS [None]
